FAERS Safety Report 10159883 (Version 1)
Quarter: 2014Q2

REPORT INFORMATION
  Report Type: Spontaneous
  Country: DE (occurrence: DE)
  Receive Date: 20140508
  Receipt Date: 20140508
  Transmission Date: 20141212
  Serious: Yes (Hospitalization)
  Sender: FDA-Public Use
  Company Number: PHHY2014DE055147

PATIENT
  Sex: Male

DRUGS (1)
  1. GILENYA [Suspect]
     Dosage: 0.5 MG, UNK
     Route: 048

REACTIONS (3)
  - Convulsion [Unknown]
  - Nasopharyngitis [Unknown]
  - Lower respiratory tract infection [Unknown]
